FAERS Safety Report 11558288 (Version 1)
Quarter: 2015Q3

REPORT INFORMATION
  Report Type: Spontaneous
  Country: US (occurrence: None)
  Receive Date: 20150925
  Receipt Date: 20150925
  Transmission Date: 20151125
  Serious: Yes (Disabling)
  Sender: FDA-Public Use
  Company Number: None

PATIENT
  Age: 52 Year
  Sex: Female
  Weight: 104.33 kg

DRUGS (1)
  1. OXYBUTYNIN [Suspect]
     Active Substance: OXYBUTYNIN
     Indication: BLADDER DYSFUNCTION

REACTIONS (6)
  - Incorrect dose administered [None]
  - Impaired driving ability [None]
  - Dysarthria [None]
  - Impaired work ability [None]
  - Drug dispensing error [None]
  - Nervous system disorder [None]
